FAERS Safety Report 8955610 (Version 1)
Quarter: 2012Q4

REPORT INFORMATION
  Report Type: 
  Country: FR (occurrence: FR)
  Receive Date: 20121207
  Receipt Date: 20121207
  Transmission Date: 20130627
  Serious: Yes (Other)
  Sender: FDA-Public Use
  Company Number: FR-SANOFI-AVENTIS-2012SA089228

PATIENT
  Age: 67 Year
  Sex: Male

DRUGS (1)
  1. ZOLPIDEM ZENTIVA [Suspect]
     Indication: INSOMNIA
     Route: 048
     Dates: start: 20121202, end: 20121204

REACTIONS (3)
  - Respiratory failure [Unknown]
  - Headache [Unknown]
  - Abdominal pain [Unknown]
